FAERS Safety Report 5352409-X (Version None)
Quarter: 2007Q2

REPORT INFORMATION
  Report Type: 
  Country: None (occurrence: None)
  Receive Date: 20070607
  Receipt Date: 20070607
  Transmission Date: 20071010
  Serious: Yes (Hospitalization)
  Sender: FDA-Public Use
  Company Number: None

PATIENT
  Sex: Female
  Weight: 81.1939 kg

DRUGS (10)
  1. PHOSPHOSODA GINGER LEMON [Suspect]
     Indication: COLONOSCOPY
     Dosage: 45 ML;X1;PO
     Route: 048
     Dates: start: 20040517, end: 20040518
  2. SUBLIMAZE PRESERVATIVE FREE [Concomitant]
  3. VERSED [Concomitant]
  4. DIPRIVAN [Concomitant]
  5. DIPENTUM [Concomitant]
  6. LIPITOR [Concomitant]
  7. ELAVIL [Concomitant]
  8. ASPIRIN [Concomitant]
  9. CENTRUM [Concomitant]
  10. SILVER VITAMIN [Concomitant]

REACTIONS (15)
  - ANAEMIA [None]
  - CONTRAST MEDIA REACTION [None]
  - DYSPEPSIA [None]
  - EOSINOPHIL COUNT INCREASED [None]
  - GASTROINTESTINAL HAEMORRHAGE [None]
  - HYPOKALAEMIA [None]
  - HYPOVOLAEMIA [None]
  - INFLUENZA LIKE ILLNESS [None]
  - NEPHRITIS INTERSTITIAL [None]
  - NEPHROCALCINOSIS [None]
  - RASH [None]
  - RENAL ARTERIOSCLEROSIS [None]
  - RENAL FAILURE ACUTE [None]
  - RENAL TUBULAR NECROSIS [None]
  - STEATORRHOEA [None]
